FAERS Safety Report 8449008-X (Version None)
Quarter: 2012Q2

REPORT INFORMATION
  Report Type: 
  Country: None (occurrence: None)
  Receive Date: 20120619
  Receipt Date: 20120618
  Transmission Date: 20120825
  Serious: Yes (Death, Other)
  Sender: FDA-Public Use
  Company Number: PHHY2011SV112605

PATIENT
  Age: 79 Year
  Sex: Male

DRUGS (3)
  1. VOLTAREN [Suspect]
     Indication: PAIN
     Dosage: 75 MG, PRN
  2. VASTAREL [Concomitant]
  3. PROSTAMEN [Concomitant]

REACTIONS (2)
  - DEATH [None]
  - INFARCTION [None]
